FAERS Safety Report 8926489 (Version 1)
Quarter: 2012Q4

REPORT INFORMATION
  Report Type: 
  Country: FR (occurrence: FR)
  Receive Date: 20121127
  Receipt Date: 20121127
  Transmission Date: 20130627
  Serious: Yes (Other)
  Sender: FDA-Public Use
  Company Number: PHHY2012FR099908

PATIENT
  Age: 8 Year
  Sex: Male

DRUGS (4)
  1. RITALINE [Suspect]
     Dosage: 10 mg per day
     Dates: start: 2007
  2. RITALINE [Suspect]
     Dosage: 5 mg, TID
  3. RITALINE [Suspect]
     Dosage: 10 mg at 8.00 am and at 1.00 pm and 5 mg at 4.00 pm.
  4. RITALINE [Suspect]
     Dosage: 10 mg at 8.00 am, 5 mg at 1.00 pm and at 4.00 pm
     Dates: end: 20090828

REACTIONS (1)
  - Tic [Recovered/Resolved]
